FAERS Safety Report 15975813 (Version 1)
Quarter: 2019Q1

REPORT INFORMATION
  Report Type: Spontaneous
  Country: US (occurrence: US)
  Receive Date: 20190218
  Receipt Date: 20190218
  Transmission Date: 20190418
  Serious: No
  Sender: FDA-Public Use
  Company Number: US-BAYER-2019-023441

PATIENT
  Age: 27 Year
  Sex: Female

DRUGS (1)
  1. SKYLA [Suspect]
     Active Substance: LEVONORGESTREL
     Indication: INTRA-UTERINE CONTRACEPTIVE DEVICE
     Dosage: 14 MCG/24HR, CONT
     Route: 015
     Dates: start: 201802, end: 20181118

REACTIONS (6)
  - Weight increased [Not Recovered/Not Resolved]
  - Premenstrual headache [Not Recovered/Not Resolved]
  - Panic attack [Recovered/Resolved with Sequelae]
  - Tachyphrenia [Recovered/Resolved with Sequelae]
  - Libido decreased [Recovered/Resolved]
  - Vertigo [Recovered/Resolved]

NARRATIVE: CASE EVENT DATE: 201802
